FAERS Safety Report 8297674-4 (Version None)
Quarter: 2012Q2

REPORT INFORMATION
  Report Type: 
  Country: None (occurrence: None)
  Receive Date: 20120419
  Receipt Date: 20120410
  Transmission Date: 20120825
  Serious: Yes (Other)
  Sender: FDA-Public Use
  Company Number: US-JNJFOC-20120403085

PATIENT
  Sex: Female
  Weight: 82.56 kg

DRUGS (10)
  1. XARELTO [Suspect]
     Indication: THROMBOSIS PROPHYLAXIS
     Route: 048
     Dates: start: 20120328
  2. XARELTO [Suspect]
     Indication: ATRIAL FIBRILLATION
     Route: 048
     Dates: start: 20120328
  3. SINGULAIR [Concomitant]
     Indication: ASTHMA
     Route: 048
  4. CRESTOR [Concomitant]
     Indication: BLOOD CHOLESTEROL
     Route: 048
  5. NEXIUM [Concomitant]
     Indication: GASTROOESOPHAGEAL REFLUX DISEASE
     Route: 048
  6. AMIODARONE HCL [Concomitant]
     Indication: HEART RATE
     Route: 048
  7. BYSTOLIC [Concomitant]
     Indication: BLOOD PRESSURE
     Route: 048
  8. DIOVAN [Concomitant]
     Indication: BLOOD PRESSURE
     Route: 048
  9. SYMBICORT [Concomitant]
     Route: 055
  10. NASONEX [Concomitant]
     Route: 055

REACTIONS (8)
  - EPISTAXIS [None]
  - FATIGUE [None]
  - MUSCULOSKELETAL STIFFNESS [None]
  - BONE PAIN [None]
  - HEADACHE [None]
  - GAIT DISTURBANCE [None]
  - ASTHENIA [None]
  - NASAL CONGESTION [None]
